FAERS Safety Report 22754554 (Version 4)
Quarter: 2024Q4

REPORT INFORMATION
  Report Type: Report from Study
  Country: AU (occurrence: AU)
  Receive Date: 20230727
  Receipt Date: 20241223
  Transmission Date: 20250115
  Serious: Yes (Other)
  Sender: CSL BEHRING
  Company Number: AU-BEH-2023161248

PATIENT
  Age: 80 Year
  Sex: Male

DRUGS (3)
  1. BERINERT [Suspect]
     Active Substance: HUMAN C1-ESTERASE INHIBITOR
     Dosage: UNK
     Route: 042
  2. BERINERT [Suspect]
     Active Substance: HUMAN C1-ESTERASE INHIBITOR
     Dosage: UNK
     Route: 042
  3. HAEGARDA [Suspect]
     Active Substance: HUMAN C1-ESTERASE INHIBITOR
     Route: 058

REACTIONS (15)
  - Drug ineffective [Unknown]
  - Congenital neuropathy [Unknown]
  - Cholecystitis infective [Unknown]
  - Injection site pain [Unknown]
  - Therapy change [Unknown]
  - Vascular graft [Unknown]
  - Intervertebral disc degeneration [Unknown]
  - COVID-19 [Unknown]
  - Mood swings [Unknown]
  - Abdominal discomfort [Unknown]
  - Constipation [Unknown]
  - Flatulence [Unknown]
  - Diarrhoea [Unknown]
  - Muscular weakness [Unknown]
  - Muscular weakness [Unknown]

NARRATIVE: CASE EVENT DATE: 20120101
